FAERS Safety Report 20127532 (Version 1)
Quarter: 2021Q4

REPORT INFORMATION
  Report Type: Spontaneous
  Country: US (occurrence: None)
  Receive Date: 20211129
  Receipt Date: 20211129
  Transmission Date: 20220303
  Serious: Yes (Death, Life-Threatening)
  Sender: FDA-Public Use
  Company Number: None

PATIENT
  Age: 72 Year
  Sex: Male
  Weight: 81.9 kg

DRUGS (1)
  1. AMIODARONE [Suspect]
     Active Substance: AMIODARONE
     Indication: Supraventricular tachycardia
     Dates: end: 20210426

REACTIONS (11)
  - Dizziness [None]
  - Ataxia [None]
  - Thyroid disorder [None]
  - Cardiac failure congestive [None]
  - Oedema [None]
  - Cough [None]
  - Hallucination [None]
  - Decreased appetite [None]
  - Gait inability [None]
  - Fall [None]
  - Renal failure [None]

NARRATIVE: CASE EVENT DATE: 20210416
